FAERS Safety Report 9308953 (Version 1)
Quarter: 2013Q2

REPORT INFORMATION
  Report Type: Spontaneous
  Country: BR (occurrence: BR)
  Receive Date: 20130524
  Receipt Date: 20130524
  Transmission Date: 20140414
  Serious: Yes (Hospitalization, Other)
  Sender: FDA-Public Use
  Company Number: BR-ASTRAZENECA-2013SE35849

PATIENT
  Age: 68 Year
  Sex: Male
  Weight: 77 kg

DRUGS (5)
  1. CRESTOR [Suspect]
     Indication: BLOOD CHOLESTEROL INCREASED
     Route: 048
     Dates: start: 2011
  2. BRILINTA [Suspect]
     Route: 048
     Dates: start: 20130426
  3. SOLMAGIN CARDIO [Concomitant]
     Dosage: DAILY
     Dates: start: 2011
  4. DIOVAN [Concomitant]
     Indication: HYPERTENSION
     Dosage: DAILY
     Dates: start: 2011
  5. CLOPIDOGREL [Concomitant]
     Dosage: DAILY
     Dates: start: 20121117, end: 20130425

REACTIONS (2)
  - Coronary artery occlusion [Not Recovered/Not Resolved]
  - Dyspnoea [Not Recovered/Not Resolved]
